FAERS Safety Report 16934641 (Version 2)
Quarter: 2019Q4

REPORT INFORMATION
  Report Type: Spontaneous
  Country: US (occurrence: US)
  Receive Date: 20191018
  Receipt Date: 20191106
  Transmission Date: 20200122
  Serious: Yes (Hospitalization, Other)
  Sender: FDA-Public Use
  Company Number: US-VELOXIS PHARMACEUTICALS-2019VELUS-000570

PATIENT
  Sex: Male

DRUGS (3)
  1. ENVARSUS XR [Suspect]
     Active Substance: TACROLIMUS
     Indication: PROPHYLAXIS AGAINST TRANSPLANT REJECTION
     Dosage: 1 MG, QD
     Route: 048
     Dates: start: 20190720
  2. ENVARSUS XR [Suspect]
     Active Substance: TACROLIMUS
     Dosage: 2 MG, QD
     Route: 048
     Dates: start: 2019, end: 2019
  3. ENVARSUS XR [Suspect]
     Active Substance: TACROLIMUS
     Dosage: 3 MG, QD
     Route: 048
     Dates: start: 2019, end: 2019

REACTIONS (5)
  - Blindness [Unknown]
  - Cognitive disorder [Unknown]
  - Tremor [Unknown]
  - Aphasia [Unknown]
  - Gait inability [Unknown]

NARRATIVE: CASE EVENT DATE: 2019
